FAERS Safety Report 8509175 (Version 4)
Quarter: 2017Q2

REPORT INFORMATION
  Report Type: Spontaneous
  Country: US (occurrence: US)
  Receive Date: 20120412
  Receipt Date: 20170405
  Transmission Date: 20170830
  Serious: No
  Sender: FDA-Public Use
  Company Number: US-ASTRAZENECA-2011SE57728

PATIENT
  Age: 55 Year
  Sex: Female
  Weight: 59 kg

DRUGS (12)
  1. RANITIDINE HYDROCHLORIDE. [Concomitant]
     Active Substance: RANITIDINE HYDROCHLORIDE
  2. AMLODIPINE [Concomitant]
     Active Substance: AMLODIPINE BESYLATE
  3. ESTRADIOL. [Concomitant]
     Active Substance: ESTRADIOL
  4. BUPROPRION WELLBUTRIN [Concomitant]
  5. PANTOPRAZOLE [Concomitant]
     Active Substance: PANTOPRAZOLE
  6. ZOLPIDEM [Concomitant]
     Active Substance: ZOLPIDEM\ZOLPIDEM TARTRATE
  7. VALTREX [Concomitant]
     Active Substance: VALACYCLOVIR HYDROCHLORIDE
  8. DEXLANSOPRAZOLE [Concomitant]
     Active Substance: DEXLANSOPRAZOLE
  9. NEXIUM [Suspect]
     Active Substance: ESOMEPRAZOLE MAGNESIUM
     Indication: GASTROOESOPHAGEAL REFLUX DISEASE
     Route: 048
  10. BABY ASPIRIN [Concomitant]
     Active Substance: ASPIRIN
  11. NAPROXEN SODIUM. [Concomitant]
     Active Substance: NAPROXEN SODIUM
  12. OMEPRAZOLE. [Suspect]
     Active Substance: OMEPRAZOLE
     Dosage: 40.0MG UNKNOWN
     Route: 048
     Dates: start: 201102, end: 201104

REACTIONS (12)
  - Gastritis [Unknown]
  - Arthritis [Unknown]
  - Drug ineffective [Unknown]
  - Chest pain [Unknown]
  - Dyspepsia [Recovered/Resolved]
  - Hypertension [Unknown]
  - Drug dose omission [Unknown]
  - Pain [Unknown]
  - Feeding disorder [Unknown]
  - Depression [Unknown]
  - Hypoacusis [Not Recovered/Not Resolved]
  - Malaise [Unknown]
